FAERS Safety Report 5034718-7 (Version None)
Quarter: 2006Q2

REPORT INFORMATION
  Report Type: 
  Country: None (occurrence: None)
  Receive Date: 20060621
  Receipt Date: 20060602
  Transmission Date: 20061013
  Serious: Yes (Hospitalization)
  Sender: FDA-Public Use
  Company Number: GR200604000054

PATIENT
  Age: 5 Month
  Sex: Male
  Weight: 8.5 kg

DRUGS (1)
  1. CECLOR [Suspect]
     Indication: OTITIS MEDIA ACUTE
     Dosage: 40 MG/KG, 3/D, ORAL
     Route: 048
     Dates: start: 20060221, end: 20060222

REACTIONS (1)
  - HAEMATOCHEZIA [None]
